FAERS Safety Report 23932109 (Version 2)
Quarter: 2024Q2

REPORT INFORMATION
  Report Type: Spontaneous
  Country: SY (occurrence: SY)
  Receive Date: 20240603
  Receipt Date: 20240618
  Transmission Date: 20240716
  Serious: Yes (Death)
  Sender: FDA-Public Use
  Company Number: SY-MLMSERVICE-20240520-PI064868-00117-1

PATIENT
  Age: 19 Year
  Sex: Male

DRUGS (3)
  1. METHOTREXATE [Suspect]
     Active Substance: METHOTREXATE
     Indication: Chloroma
     Route: 037
     Dates: start: 2022
  2. DEXAMETHASONE [Suspect]
     Active Substance: DEXAMETHASONE
     Indication: Chloroma
     Route: 037
     Dates: start: 2022
  3. CYTARABINE [Suspect]
     Active Substance: CYTARABINE
     Indication: Chloroma
     Dosage: HIGH-DOSE
     Dates: start: 2022

REACTIONS (1)
  - Febrile neutropenia [Fatal]

NARRATIVE: CASE EVENT DATE: 20220101
